FAERS Safety Report 7407451-1 (Version None)
Quarter: 2011Q2

REPORT INFORMATION
  Report Type: 
  Country: None (occurrence: None)
  Receive Date: 20110411
  Receipt Date: 20110405
  Transmission Date: 20111010
  Serious: Yes (Hospitalization)
  Sender: FDA-Public Use
  Company Number: US-BRISTOL-MYERS SQUIBB COMPANY-15624356

PATIENT
  Age: 80 Year
  Sex: Male

DRUGS (19)
  1. BLINDED: CT-322 [Suspect]
     Indication: NON-SMALL CELL LUNG CANCER
     Dosage: INTERRUPTED ON 17MAR11
     Route: 042
     Dates: start: 20101214, end: 20110317
  2. NASONEX [Concomitant]
  3. CENTRUM [Concomitant]
     Dosage: 1 DF= 1 CAPS
  4. AUGMENTIN [Concomitant]
     Route: 048
  5. SYMBICORT [Concomitant]
     Dosage: 1 DF= 160/4.5 UNITS NOS 2 PUFFS
  6. VESICARE [Concomitant]
  7. CARDIZEM CD [Concomitant]
     Dosage: CARDIZEM CD 120 MG CAPS, 23MAR11.
     Route: 048
  8. ZOLOFT [Concomitant]
     Dosage: ZOLOFT 50MG TABS, 23MAR2011
     Route: 048
  9. PACLITAXEL [Suspect]
     Indication: NON-SMALL CELL LUNG CANCER
     Dosage: INTERRUPT ON 17MAR2011,1 DF=400 UNITS NOT SPECIFIED
     Route: 042
     Dates: start: 20101214, end: 20110317
  10. ALTACE [Concomitant]
     Dosage: ALTACE 10MG CAPS, LAST DOSE ON 23MAR11.
     Route: 048
  11. BLINDED: AVASTIN [Suspect]
     Indication: NON-SMALL CELL LUNG CANCER
     Dosage: INTERRUPTED ON 17MAR11
     Route: 042
     Dates: start: 20101214, end: 20110317
  12. FLUOCINONIDE [Concomitant]
  13. PRILOSEC [Concomitant]
     Dosage: PRILOSEC 20MG CAPS ,23MAR2011
     Route: 048
  14. CARBOPLATIN [Suspect]
     Indication: NON-SMALL CELL LUNG CANCER
     Dosage: DRUG INTERRUPT ON 17MAR2011,1 DF=492 UNITS UNSPECIFIED,NO OF COURSES=5.
     Route: 042
     Dates: start: 20101214, end: 20110317
  15. BLINDED: PLACEBO [Suspect]
     Indication: NON-SMALL CELL LUNG CANCER
     Dosage: INTERRUPT ON 17MAR2011
     Route: 042
     Dates: start: 20101214, end: 20110317
  16. CITRACAL [Concomitant]
     Dosage: 1 DF= 1 UNITS NOS
  17. MULTAQ [Concomitant]
     Dosage: MULTAQ 400 MG TAB, 23MAR2011
     Route: 048
  18. ADVAIR HFA [Concomitant]
     Dosage: 1 DF= ADVAIR HFA 115-21 MCG INH,23MAR2011
     Route: 055
  19. ASPIRIN [Concomitant]
     Dosage: ASPIRIN 81 MG TABS
     Route: 048

REACTIONS (2)
  - PNEUMONIA [None]
  - ATRIAL FIBRILLATION [None]
